FAERS Safety Report 24606196 (Version 3)
Quarter: 2025Q2

REPORT INFORMATION
  Report Type: Report from Study
  Country: US (occurrence: US)
  Receive Date: 20241112
  Receipt Date: 20250515
  Transmission Date: 20250716
  Serious: Yes (Hospitalization, Other)
  Sender: ABBVIE
  Company Number: US-ABBVIE-5992800

PATIENT
  Age: 52 Year
  Sex: Female

DRUGS (2)
  1. SKYRIZI [Suspect]
     Active Substance: RISANKIZUMAB-RZAA
     Indication: Psoriasis
     Route: 058
     Dates: start: 20230606
  2. SKYRIZI [Suspect]
     Active Substance: RISANKIZUMAB-RZAA
     Indication: Colitis ulcerative
     Route: 058
     Dates: start: 20241118

REACTIONS (14)
  - Surgery [Unknown]
  - Gastrointestinal disorder [Not Recovered/Not Resolved]
  - Cholecystectomy [Unknown]
  - Psoriasis [Not Recovered/Not Resolved]
  - Post procedural haemorrhage [Unknown]
  - Post procedural inflammation [Unknown]
  - Diarrhoea [Not Recovered/Not Resolved]
  - Nephrolithiasis [Recovering/Resolving]
  - Gastric haemorrhage [Unknown]
  - Back pain [Unknown]
  - Dyspnoea [Unknown]
  - Pain in extremity [Unknown]
  - Chest pain [Unknown]
  - Rectal haemorrhage [Not Recovered/Not Resolved]

NARRATIVE: CASE EVENT DATE: 20240101
